FAERS Safety Report 9227681 (Version 1)
Quarter: 2013Q2

REPORT INFORMATION
  Report Type: Spontaneous
  Country: GB (occurrence: GB)
  Receive Date: 20130412
  Receipt Date: 20130412
  Transmission Date: 20140414
  Serious: Yes (Hospitalization, Other)
  Sender: FDA-Public Use
  Company Number: GB-BRISTOL-MYERS SQUIBB COMPANY-17377896

PATIENT
  Age: 40 Year
  Sex: Female

DRUGS (1)
  1. IPILIMUMAB [Suspect]
     Indication: METASTATIC MALIGNANT MELANOMA
     Dosage: INTERRUPTED ON 20DEC12:NO OF COURSE-4CYCLES
     Route: 042
     Dates: start: 20121011, end: 20121220

REACTIONS (2)
  - Diarrhoea infectious [Recovered/Resolved]
  - Vomiting [Recovered/Resolved]
